FAERS Safety Report 6186224-4 (Version None)
Quarter: 2009Q2

REPORT INFORMATION
  Report Type: 
  Country: None (occurrence: None)
  Receive Date: 20090511
  Receipt Date: 20090429
  Transmission Date: 20091009
  Serious: Yes (Other)
  Sender: FDA-Public Use
  Company Number: PHHY2009BR16484

PATIENT
  Age: 74 Year
  Sex: Female

DRUGS (1)
  1. FORASEQ [Suspect]
     Dosage: UNK
     Dates: start: 20040101

REACTIONS (3)
  - BONE OPERATION [None]
  - DEVICE MALFUNCTION [None]
  - HIP ARTHROPLASTY [None]
